FAERS Safety Report 13830014 (Version 2)
Quarter: 2017Q3

REPORT INFORMATION
  Report Type: Spontaneous
  Country: US (occurrence: US)
  Receive Date: 20170803
  Receipt Date: 20170809
  Transmission Date: 20171127
  Serious: Yes (Hospitalization)
  Sender: FDA-Public Use
  Company Number: US-BAUSCH-BL-2017-022914

PATIENT
  Age: 79 Year
  Sex: Female

DRUGS (13)
  1. HYDRALAZINE [Concomitant]
     Active Substance: HYDRALAZINE HYDROCHLORIDE
     Indication: HYPERTENSION
  2. SPIRONOLACTONE. [Concomitant]
     Active Substance: SPIRONOLACTONE
     Indication: RENAL DISORDER
  3. CALCIUM PLUS VITAMIN D [Concomitant]
     Active Substance: CALCIUM\VITAMIN D
     Indication: PRODUCT USED FOR UNKNOWN INDICATION
  4. XIFAXAN [Suspect]
     Active Substance: RIFAXIMIN
     Route: 048
     Dates: start: 201706, end: 201707
  5. INSULIN [Concomitant]
     Active Substance: INSULIN NOS
     Indication: DIABETES MELLITUS
     Dosage: AT NIGHT
  6. LEVOTHYROXINE. [Concomitant]
     Active Substance: LEVOTHYROXINE
     Indication: THYROID DISORDER
  7. XIFAXAN [Suspect]
     Active Substance: RIFAXIMIN
     Route: 048
     Dates: start: 201707
  8. PROBIOTIC [Concomitant]
     Active Substance: PROBIOTICS NOS
     Indication: PRODUCT USED FOR UNKNOWN INDICATION
  9. XIFAXAN [Suspect]
     Active Substance: RIFAXIMIN
     Indication: HEPATIC FAILURE
     Route: 048
     Dates: start: 2014
  10. VITAMIN D3 [Concomitant]
     Active Substance: CHOLECALCIFEROL
     Indication: BONE DISORDER
  11. LETROZOLE. [Concomitant]
     Active Substance: LETROZOLE
     Indication: BREAST CANCER
  12. SERTRALINE [Concomitant]
     Active Substance: SERTRALINE HYDROCHLORIDE
     Indication: NERVOUS SYSTEM DISORDER
  13. OMEPRAZOLE. [Concomitant]
     Active Substance: OMEPRAZOLE
     Indication: GASTROOESOPHAGEAL REFLUX DISEASE

REACTIONS (4)
  - Renal failure [Recovered/Resolved]
  - Urinary tract infection [Recovered/Resolved]
  - Ammonia increased [Recovered/Resolved]
  - Coma [Recovered/Resolved]

NARRATIVE: CASE EVENT DATE: 201706
